FAERS Safety Report 8491216-6 (Version None)
Quarter: 2012Q3

REPORT INFORMATION
  Report Type: 
  Country: None (occurrence: None)
  Receive Date: 20120706
  Receipt Date: 20120626
  Transmission Date: 20120928
  Serious: Yes (Other)
  Sender: FDA-Public Use
  Company Number: CA-JNJFOC-20120613438

PATIENT
  Sex: Male
  Weight: 81 kg

DRUGS (10)
  1. CALCIUM CARBONATE [Concomitant]
     Route: 065
  2. REMICADE [Suspect]
     Route: 042
     Dates: start: 20120326
  3. VITAMIN D [Concomitant]
     Dosage: 1000 UNITS/DAY
     Route: 065
  4. MESASAL [Concomitant]
     Route: 065
  5. REMICADE [Suspect]
     Indication: CROHN'S DISEASE
     Route: 042
  6. REMICADE [Suspect]
     Route: 042
     Dates: start: 20120326
  7. REMICADE [Suspect]
     Indication: ANKYLOSING SPONDYLITIS
     Route: 042
  8. CELEXA [Concomitant]
     Route: 065
  9. ZYLOPRIM [Concomitant]
     Route: 065
  10. UNKNOWN MEDICATION [Concomitant]
     Dosage: 400-500 MG 1 TAB EVERY DAY
     Route: 065

REACTIONS (3)
  - MUSCULOSKELETAL STIFFNESS [None]
  - PAIN IN EXTREMITY [None]
  - ARTHRALGIA [None]
